FAERS Safety Report 6676157-9 (Version None)
Quarter: 2010Q2

REPORT INFORMATION
  Report Type: 
  Country: None (occurrence: None)
  Receive Date: 20100412
  Receipt Date: 20100329
  Transmission Date: 20101027
  Serious: No
  Sender: FDA-Public Use
  Company Number: US-B.I. PHARMACEUTICALS,INC./RIDGEFIELD-2010-BP-03701BP

PATIENT
  Age: 52 Year
  Sex: Male

DRUGS (5)
  1. VIRAMUNE [Suspect]
     Indication: HIV INFECTION
  2. PREZISTA [Concomitant]
  3. NORVIR [Concomitant]
  4. VIREAD [Concomitant]
  5. ZIAGEN [Concomitant]

REACTIONS (1)
  - DRUG INTOLERANCE [None]
